FAERS Safety Report 6889728-1 (Version None)
Quarter: 2010Q3

REPORT INFORMATION
  Report Type: 
  Country: None (occurrence: None)
  Receive Date: 20100730
  Receipt Date: 20080415
  Transmission Date: 20110219
  Serious: Yes (Other)
  Sender: FDA-Public Use
  Company Number: US-PFIZER INC-2008033455

PATIENT
  Sex: Female
  Weight: 68 kg

DRUGS (8)
  1. LIPITOR [Suspect]
     Indication: BLOOD CHOLESTEROL INCREASED
  2. NORVASC [Concomitant]
  3. ATENOLOL [Concomitant]
  4. CARDURA [Concomitant]
  5. CLONIDINE [Concomitant]
  6. ASPIRIN [Concomitant]
     Dosage: 0.375
  7. ZETIA [Concomitant]
  8. TRICOR [Concomitant]

REACTIONS (4)
  - BLOOD PRESSURE INCREASED [None]
  - DYSSTASIA [None]
  - MUSCLE SPASMS [None]
  - MUSCLE TIGHTNESS [None]
